FAERS Safety Report 12762200 (Version 3)
Quarter: 2016Q4

REPORT INFORMATION
  Report Type: Spontaneous
  Country: US (occurrence: US)
  Receive Date: 20160920
  Receipt Date: 20161213
  Transmission Date: 20170207
  Serious: Yes (Hospitalization)
  Sender: FDA-Public Use
  Company Number: US-009507513-1609USA008191

PATIENT
  Age: 57 Year
  Sex: Female

DRUGS (1)
  1. JANUVIA [Suspect]
     Active Substance: SITAGLIPTIN PHOSPHATE
     Indication: DIABETES MELLITUS
     Dosage: 50 MG, DAILY
     Route: 048
     Dates: end: 20160914

REACTIONS (1)
  - Metabolic surgery [Unknown]

NARRATIVE: CASE EVENT DATE: 20160915
